FAERS Safety Report 16205156 (Version 2)
Quarter: 2019Q2

REPORT INFORMATION
  Report Type: Report from Study
  Country: US (occurrence: US)
  Receive Date: 20190416
  Receipt Date: 20190422
  Transmission Date: 20190711
  Serious: No
  Sender: FDA-Public Use
  Company Number: US-AMGEN-USASL2019035278

PATIENT
  Age: 56 Year
  Sex: Female

DRUGS (2)
  1. ENBREL [Suspect]
     Active Substance: ETANERCEPT
     Indication: RHEUMATOID ARTHRITIS
     Dosage: 50 MILLIGRAM, QWK
     Route: 065
  2. ENBREL [Suspect]
     Active Substance: ETANERCEPT
     Indication: PSORIATIC ARTHROPATHY
     Dosage: 50 MILLIGRAM, QWK
     Route: 065
     Dates: start: 20181219

REACTIONS (8)
  - Pyrexia [Unknown]
  - Injection site swelling [Unknown]
  - Injection site warmth [Unknown]
  - Injection site erythema [Unknown]
  - Injection site urticaria [Unknown]
  - Injection site reaction [Unknown]
  - Injection site bruising [Unknown]
  - Injection site pain [Unknown]

NARRATIVE: CASE EVENT DATE: 20190224
